FAERS Safety Report 9146721 (Version 1)
Quarter: 2013Q1

REPORT INFORMATION
  Report Type: Spontaneous
  Country: US (occurrence: US)
  Receive Date: 20130307
  Receipt Date: 20130307
  Transmission Date: 20140127
  Serious: Yes (Other)
  Sender: FDA-Public Use
  Company Number: US-JNJFOC-20130216895

PATIENT
  Sex: Male
  Weight: 81.65 kg

DRUGS (11)
  1. TOPIRAMATE [Suspect]
     Indication: GROIN PAIN
     Route: 048
     Dates: start: 2012, end: 2012
  2. TOPIRAMATE [Suspect]
     Indication: PAIN IN EXTREMITY
     Route: 048
     Dates: start: 2012, end: 2012
  3. TOPIRAMATE [Suspect]
     Indication: DYSURIA
     Route: 048
     Dates: start: 2012, end: 2012
  4. NUCYNTA [Concomitant]
     Indication: PAIN
     Route: 048
  5. UNKNOWN MEDICATION [Concomitant]
     Indication: BLOOD PRESSURE
  6. CYMBALTA [Concomitant]
     Indication: GROIN PAIN
     Route: 065
     Dates: start: 2012
  7. CYMBALTA [Concomitant]
     Indication: PAIN IN EXTREMITY
     Route: 065
     Dates: start: 2012
  8. CYMBALTA [Concomitant]
     Indication: DYSURIA
     Route: 065
     Dates: start: 2012
  9. GABAPENTIN [Concomitant]
     Indication: GROIN PAIN
     Route: 065
     Dates: start: 2012
  10. GABAPENTIN [Concomitant]
     Indication: PAIN IN EXTREMITY
     Route: 065
     Dates: start: 2012
  11. GABAPENTIN [Concomitant]
     Indication: DYSURIA
     Route: 065
     Dates: start: 2012

REACTIONS (4)
  - Self-injurious ideation [Unknown]
  - Feeling abnormal [Unknown]
  - Pruritus [Unknown]
  - Paraesthesia oral [Unknown]
